FAERS Safety Report 13270631 (Version 1)
Quarter: 2017Q1

REPORT INFORMATION
  Report Type: Spontaneous
  Country: IT (occurrence: IT)
  Receive Date: 20170224
  Receipt Date: 20170224
  Transmission Date: 20170428
  Serious: Yes (Hospitalization)
  Sender: FDA-Public Use
  Company Number: IT-IMPAX LABORATORIES, INC-2017-IPXL-00432

PATIENT
  Age: 78 Year
  Sex: Male

DRUGS (3)
  1. CARBIDOPA-LEVODOPA ODT [Suspect]
     Active Substance: CARBIDOPA\LEVODOPA
     Indication: PARKINSON^S DISEASE
     Dosage: 25/100 MG, 4 TIMES A DAY; 500 MG/DAY
     Route: 065
  2. CARBIDOPA-LEVODOPA ODT [Suspect]
     Active Substance: CARBIDOPA\LEVODOPA
     Dosage: 200 MG, DAILY
     Route: 065
  3. PRAMIPEXOLE. [Suspect]
     Active Substance: PRAMIPEXOLE
     Indication: PARKINSON^S DISEASE
     Dosage: 1.05 MG, DAILY
     Route: 065

REACTIONS (9)
  - Anxiety [Unknown]
  - Illusion [Recovered/Resolved]
  - Executive dysfunction [Unknown]
  - Femur fracture [Recovered/Resolved]
  - Fall [Recovered/Resolved]
  - Cognitive disorder [Unknown]
  - Delusion of replacement [Recovered/Resolved]
  - Agitation [Unknown]
  - Disorientation [Unknown]
